FAERS Safety Report 17577094 (Version 1)
Quarter: 2020Q1

REPORT INFORMATION
  Report Type: Spontaneous
  Country: GB (occurrence: GB)
  Receive Date: 20200324
  Receipt Date: 20200324
  Transmission Date: 20200409
  Serious: Yes (Other)
  Sender: FDA-Public Use
  Company Number: GB-MYLANLABS-2020M1029897

PATIENT
  Age: 71 Year
  Sex: Female
  Weight: 64 kg

DRUGS (9)
  1. ADCAL                              /07357001/ [Concomitant]
     Active Substance: CALCIUM CARBONATE
     Dosage: 2 DOSAGE FORM, QD
     Dates: start: 20180424
  2. ALENDRONIC ACID [Concomitant]
     Active Substance: ALENDRONIC ACID
     Dosage: 1 DOSAGE FORM, QW
     Dates: start: 20190214
  3. NOVORAPID [Concomitant]
     Active Substance: INSULIN ASPART
     Dosage: USE AS DIRECTED
     Dates: start: 20190312
  4. ZAPAIN [Concomitant]
     Active Substance: ACETAMINOPHEN\CODEINE PHOSPHATE
     Dosage: TAKE TWO IN THE MORNING AND TWO AT NIGHT AS REQUIRED
     Dates: start: 20190912
  5. LANTUS [Concomitant]
     Active Substance: INSULIN GLARGINE
     Dosage: USE AS DIRECTED
     Dates: start: 20190312
  6. SIMVASTATIN. [Concomitant]
     Active Substance: SIMVASTATIN
     Dosage: TAKE AT NIGHT
     Dates: start: 20190214
  7. DOXYCYCLINE. [Suspect]
     Active Substance: DOXYCYCLINE
     Indication: PRODUCT USED FOR UNKNOWN INDICATION
     Dosage: TWO NOW THEN ONE DAILY
     Dates: start: 20200213
  8. OMEPRAZOLE. [Concomitant]
     Active Substance: OMEPRAZOLE
     Dosage: 1 DOSAGE FORM, QD
     Dates: start: 20190214
  9. LOSARTAN. [Concomitant]
     Active Substance: LOSARTAN
     Dosage: 1 DOSAGE FORM, QD
     Dates: start: 20190214

REACTIONS (2)
  - Condition aggravated [Unknown]
  - Muscular weakness [Recovered/Resolved]
